FAERS Safety Report 7893619 (Version 1)
Quarter: 2020Q3

REPORT INFORMATION
  Report Type: Report from Study
  Country: US (occurrence: US)
  Receive Date: 20110411
  Receipt Date: 20110411
  Transmission Date: 20201105
  Serious: Yes (Hospitalization)
  Sender: FDA-Public Use
  Company Number: US-JNJFOC-20110400844

PATIENT
  Age: 59 Year
  Sex: Male
  Weight: 112.8 kg

DRUGS (23)
  1. REMICADE [Suspect]
     Active Substance: INFLIXIMAB
     Dosage: WEEK 22
     Route: 042
  2. LISINOPRIL. [Concomitant]
     Active Substance: LISINOPRIL
     Route: 048
  3. VITAMIN B12 [Concomitant]
     Active Substance: CYANOCOBALAMIN
     Route: 048
  4. REMICADE [Suspect]
     Active Substance: INFLIXIMAB
     Route: 042
  5. REMICADE [Suspect]
     Active Substance: INFLIXIMAB
     Dosage: WEEK 14
     Route: 042
  6. REMICADE [Suspect]
     Active Substance: INFLIXIMAB
     Dosage: WEEK 2, DOSE RECEIVED WAS 4.9
     Route: 042
  7. CALCIUM CITRATE WITH VITAMIN D [Concomitant]
     Route: 048
  8. VITAMIN D2 [Concomitant]
     Active Substance: ERGOCALCIFEROL
     Route: 003
  9. REMICADE [Suspect]
     Active Substance: INFLIXIMAB
     Dosage: WEEK 0, DOSE RECEIVED PER ADMINISTRATION WAS 5.0
     Route: 042
  10. REMICADE [Suspect]
     Active Substance: INFLIXIMAB
     Indication: COLITIS ULCERATIVE
     Route: 042
  11. REMICADE [Suspect]
     Active Substance: INFLIXIMAB
     Dosage: WEEK38
     Route: 042
  12. LOZOL [Concomitant]
     Active Substance: INDAPAMIDE
     Route: 048
  13. REMICADE [Suspect]
     Active Substance: INFLIXIMAB
     Dosage: WEEK 30
     Route: 042
  14. TENORMIN [Concomitant]
     Active Substance: ATENOLOL
     Route: 048
  15. FOLIC ACID. [Concomitant]
     Active Substance: FOLIC ACID
     Route: 048
  16. MULTI?VITAMIN [Concomitant]
     Active Substance: .ALPHA.-TOCOPHEROL ACETATE, DL-\ASCORBIC ACID\CYANOCOBALAMIN\FLUORIDE ION\FOLIC ACID\NIACIN\PYRIDOXINE\RIBOFLAVIN\THIAMINE\VITAMIN A\VITAMIN D
     Route: 048
  17. ANUSOL HC [Concomitant]
     Active Substance: HYDROCORTISONE
     Route: 054
  18. MIRALAX [Concomitant]
     Active Substance: POLYETHYLENE GLYCOL 3350
     Route: 048
  19. REMICADE [Suspect]
     Active Substance: INFLIXIMAB
     Dosage: WEEK 6
     Route: 042
  20. FISH OIL [Concomitant]
     Active Substance: FISH OIL
     Route: 048
  21. IMURAN [Concomitant]
     Active Substance: AZATHIOPRINE
     Dosage: IN THE EVENING
  22. REMICADE [Suspect]
     Active Substance: INFLIXIMAB
     Dosage: WEEK 46
     Route: 042
  23. BENEFIBER [Concomitant]
     Route: 048

REACTIONS (3)
  - Colon cancer stage III [Not Recovered/Not Resolved]
  - Pulmonary embolism [Recovered/Resolved]
  - Deep vein thrombosis [Recovered/Resolved]

NARRATIVE: CASE EVENT DATE: 20100428
